FAERS Safety Report 6179644-5 (Version None)
Quarter: 2009Q2

REPORT INFORMATION
  Report Type: 
  Country: None (occurrence: None)
  Receive Date: 20090505
  Receipt Date: 20090427
  Transmission Date: 20091009
  Serious: Yes (Death, Hospitalization)
  Sender: FDA-Public Use
  Company Number: US-MERCK-0904USA00965

PATIENT
  Age: 80 Year
  Sex: Female
  Weight: 92 kg

DRUGS (2)
  1. INVANZ [Suspect]
     Indication: CELLULITIS
     Route: 042
     Dates: start: 20081003, end: 20081009
  2. VANCOMYCIN [Concomitant]
     Route: 065
     Dates: start: 20081003, end: 20081009

REACTIONS (8)
  - ADVERSE EVENT [None]
  - CEREBRAL ATROPHY [None]
  - CONFUSIONAL STATE [None]
  - DELIRIUM [None]
  - FUNGAL SEPSIS [None]
  - LETHARGY [None]
  - MULTI-ORGAN FAILURE [None]
  - MYOCLONUS [None]
